FAERS Safety Report 13115423 (Version 5)
Quarter: 2022Q1

REPORT INFORMATION
  Report Type: Spontaneous
  Country: US (occurrence: US)
  Receive Date: 20170113
  Receipt Date: 20220314
  Transmission Date: 20220423
  Serious: Yes (Hospitalization, Other)
  Sender: FDA-Public Use
  Company Number: US-LUNDBECK-DKLU2024980

PATIENT
  Age: 67 Year
  Sex: Male

DRUGS (5)
  1. ONFI [Suspect]
     Active Substance: CLOBAZAM
     Indication: Epilepsy
     Route: 065
     Dates: start: 2007
  2. ONFI [Suspect]
     Active Substance: CLOBAZAM
     Indication: Seizure
  3. CARBATROL [Concomitant]
     Active Substance: CARBAMAZEPINE
     Indication: Product used for unknown indication
     Route: 065
  4. LAMICTAL [Concomitant]
     Active Substance: LAMOTRIGINE
     Indication: Product used for unknown indication
     Route: 065
  5. ADVIL [Concomitant]
     Active Substance: IBUPROFEN
     Indication: Product used for unknown indication
     Route: 065

REACTIONS (10)
  - Balance disorder [Not Recovered/Not Resolved]
  - Condition aggravated [Not Recovered/Not Resolved]
  - Fall [Unknown]
  - Multiple fractures [Unknown]
  - Drug withdrawal convulsions [Unknown]
  - Gait inability [Unknown]
  - Seizure [Unknown]
  - Delusion [Recovering/Resolving]
  - Drug ineffective [Unknown]
  - Communication disorder [Not Recovered/Not Resolved]
